FAERS Safety Report 9711009 (Version 2)
Quarter: 2013Q4

REPORT INFORMATION
  Report Type: Spontaneous
  Country: US (occurrence: US)
  Receive Date: 20131126
  Receipt Date: 20131126
  Transmission Date: 20140711
  Serious: No
  Sender: FDA-Public Use
  Company Number: US-BRISTOL-MYERS SQUIBB COMPANY-18583575

PATIENT
  Age: 74 Year
  Sex: Female

DRUGS (4)
  1. BYDUREON 2MG VIAL + SYRINGE [Suspect]
     Indication: WEIGHT DECREASED
     Route: 058
     Dates: start: 201212
  2. BYETTA [Suspect]
     Route: 058
  3. LINAGLIPTIN [Concomitant]
     Indication: INSULIN-REQUIRING TYPE 2 DIABETES MELLITUS
     Route: 048
  4. LEVEMIR [Concomitant]
     Indication: TYPE 2 DIABETES MELLITUS

REACTIONS (3)
  - Weight decreased [Unknown]
  - Decreased appetite [Recovered/Resolved]
  - Off label use [Not Recovered/Not Resolved]
